FAERS Safety Report 6808608-0 (Version None)
Quarter: 2010Q2

REPORT INFORMATION
  Report Type: 
  Country: None (occurrence: None)
  Receive Date: 20100629
  Receipt Date: 20090817
  Transmission Date: 20101027
  Serious: No
  Sender: FDA-Public Use
  Company Number: US-PFIZER INC-2009229917

PATIENT
  Sex: Female
  Weight: 61.2 kg

DRUGS (2)
  1. TIKOSYN [Suspect]
     Indication: SUPRAVENTRICULAR TACHYCARDIA
     Dosage: 250 UG, 2X/DAY
     Dates: start: 20090501
  2. LISINOPRIL [Concomitant]
     Dosage: UNK

REACTIONS (3)
  - ARTHRALGIA [None]
  - MUSCLE SPASMS [None]
  - MYALGIA [None]
